FAERS Safety Report 10159546 (Version 2)
Quarter: 2014Q2

REPORT INFORMATION
  Report Type: Spontaneous
  Country: DE (occurrence: DE)
  Receive Date: 20140508
  Receipt Date: 20140529
  Transmission Date: 20141212
  Serious: Yes (Life-Threatening, Hospitalization)
  Sender: FDA-Public Use
  Company Number: DE-NOVOPROD-408788

PATIENT
  Age: 43 Year
  Sex: Female
  Weight: 95 kg

DRUGS (3)
  1. VICTOZA [Suspect]
     Indication: TYPE 2 DIABETES MELLITUS
     Dosage: 6 MG/ML
     Route: 065
     Dates: start: 201403
  2. VICTOZA [Suspect]
     Dosage: 12 MG/ML
     Route: 065
  3. METFORMIN [Suspect]
     Indication: TYPE 2 DIABETES MELLITUS
     Dosage: 1000 MG, TID
     Route: 048
     Dates: end: 20140316

REACTIONS (10)
  - Gastrointestinal pain [Recovered/Resolved]
  - Lactic acidosis [Recovered/Resolved]
  - Normochromic normocytic anaemia [Unknown]
  - Tachypnoea [Recovered/Resolved]
  - Respiratory fatigue [Recovered/Resolved]
  - Supraventricular tachycardia [Recovered/Resolved]
  - Renal failure acute [Recovered/Resolved]
  - Vomiting [Recovered/Resolved]
  - Nausea [Recovered/Resolved]
  - Decreased appetite [Recovered/Resolved]
